FAERS Safety Report 25763918 (Version 1)
Quarter: 2025Q3

REPORT INFORMATION
  Report Type: Spontaneous
  Country: US (occurrence: US)
  Receive Date: 20250905
  Receipt Date: 20250905
  Transmission Date: 20251020
  Serious: No
  Sender: DOMPE FARMACEUTICI
  Company Number: US-FARMAPROD-202411-3911

PATIENT
  Sex: Female

DRUGS (17)
  1. OXERVATE [Suspect]
     Active Substance: CENEGERMIN-BKBJ
     Indication: Neurotrophic keratopathy
     Route: 047
     Dates: start: 20241105
  2. MOMETASONE FUROATE [Concomitant]
     Active Substance: MOMETASONE FUROATE
  3. CLARITIN [Concomitant]
     Active Substance: LORATADINE
  4. LYSINE [Concomitant]
     Active Substance: LYSINE
  5. PROBIOTIC 10B CELL [Concomitant]
  6. FERROUS SULFATE 324 [Concomitant]
  7. CALCIUM 500 [Concomitant]
  8. VITAMIN C [Concomitant]
     Active Substance: ASCORBIC ACID
  9. OLOPATADINE HYDROCHLORIDE [Concomitant]
     Active Substance: OLOPATADINE HYDROCHLORIDE
  10. LOTEMAX [Concomitant]
     Active Substance: LOTEPREDNOL ETABONATE
  11. XIIDRA [Concomitant]
     Active Substance: LIFITEGRAST
  12. PREDNISOLONE [Concomitant]
     Active Substance: PREDNISOLONE
  13. TRIAMCINOLONE ACETONIDE [Concomitant]
     Active Substance: TRIAMCINOLONE ACETONIDE
  14. VALACYCLOVIR [Concomitant]
     Active Substance: VALACYCLOVIR HYDROCHLORIDE
  15. LEVOTHYROXINE SODIUM [Concomitant]
     Active Substance: LEVOTHYROXINE SODIUM
  16. PROTONIX [Concomitant]
     Active Substance: PANTOPRAZOLE SODIUM
  17. LORAZEPAM [Concomitant]
     Active Substance: LORAZEPAM

REACTIONS (1)
  - Eye pain [Unknown]
